FAERS Safety Report 12605221 (Version 2)
Quarter: 2019Q3

REPORT INFORMATION
  Report Type: Spontaneous
  Country: FR (occurrence: FR)
  Receive Date: 20160729
  Receipt Date: 20190801
  Transmission Date: 20191004
  Serious: Yes (Hospitalization)
  Sender: FDA-Public Use
  Company Number: FR-ROCHE-1802290

PATIENT
  Age: 69 Year
  Sex: Female
  Weight: 94 kg

DRUGS (7)
  1. NOVOMIX [Concomitant]
     Active Substance: INSULIN ASPART
  2. CORTANCYL [Concomitant]
     Active Substance: PREDNISONE
  3. MABTHERA [Suspect]
     Active Substance: RITUXIMAB
     Route: 041
     Dates: start: 20160606
  4. NOVOMIX [Concomitant]
     Active Substance: INSULIN ASPART
  5. MABTHERA [Suspect]
     Active Substance: RITUXIMAB
     Indication: IMMUNE THROMBOCYTOPENIC PURPURA
     Route: 041
     Dates: start: 20160602, end: 20160606
  6. METFORMINE [METFORMIN] [Concomitant]
     Active Substance: METFORMIN HYDROCHLORIDE
  7. METOPROLOL. [Concomitant]
     Active Substance: METOPROLOL

REACTIONS (4)
  - Off label use [Unknown]
  - Confusional state [Recovered/Resolved]
  - Cholestasis [Not Recovered/Not Resolved]
  - Hepatocellular injury [Recovering/Resolving]

NARRATIVE: CASE EVENT DATE: 20160613
